FAERS Safety Report 10482550 (Version 1)
Quarter: 2014Q3

REPORT INFORMATION
  Report Type: Report from Study
  Country: US (occurrence: US)
  Receive Date: 20140929
  Receipt Date: 20140929
  Transmission Date: 20150326
  Serious: No
  Sender: FDA-Public Use
  Company Number: US-ALEXION-A200901539

PATIENT
  Age: 36 Year
  Sex: Female

DRUGS (3)
  1. SOMA [Suspect]
     Active Substance: CARISOPRODOL
     Indication: BACK PAIN
  2. SOMA [Suspect]
     Active Substance: CARISOPRODOL
     Indication: ABDOMINAL PAIN
  3. SOLIRIS [Suspect]
     Active Substance: ECULIZUMAB
     Indication: PAROXYSMAL NOCTURNAL HAEMOGLOBINURIA
     Dosage: UNK
     Route: 042

REACTIONS (11)
  - Haemoglobinuria [Unknown]
  - Quality of life decreased [Not Recovered/Not Resolved]
  - Liver disorder [Unknown]
  - Dyspnoea [Unknown]
  - Type 2 diabetes mellitus [Unknown]
  - Jaundice [Unknown]
  - Haemolysis [Unknown]
  - Abdominal pain [Not Recovered/Not Resolved]
  - Back pain [Not Recovered/Not Resolved]
  - Laboratory test abnormal [Unknown]
  - Fatigue [Unknown]

NARRATIVE: CASE EVENT DATE: 201011
